FAERS Safety Report 20685710 (Version 1)
Quarter: 2022Q2

REPORT INFORMATION
  Report Type: Spontaneous
  Country: US (occurrence: US)
  Receive Date: 20220407
  Receipt Date: 20220407
  Transmission Date: 20220721
  Serious: No
  Sender: FDA-Public Use
  Company Number: US-PFIZER INC-202200037280

PATIENT
  Age: 72 Year
  Sex: Female

DRUGS (1)
  1. IBRANCE [Suspect]
     Active Substance: PALBOCICLIB
     Indication: Breast cancer female
     Dosage: FOR 21 DAYS ON THEN OFF FOR 7 DAYS OF 28 DAY CYCLE
     Route: 048
     Dates: start: 20201124

REACTIONS (1)
  - Onychoclasis [Not Recovered/Not Resolved]
